FAERS Safety Report 14458741 (Version 1)
Quarter: 2018Q1

REPORT INFORMATION
  Report Type: Spontaneous
  Country: US (occurrence: US)
  Receive Date: 20180130
  Receipt Date: 20180130
  Transmission Date: 20180509
  Serious: Yes (Death, Life-Threatening, Hospitalization, Other)
  Sender: FDA-Public Use
  Company Number: US-PFM-2018-00792

PATIENT

DRUGS (11)
  1. NOREPINEPHRINE. [Concomitant]
     Active Substance: NOREPINEPHRINE
     Indication: TACHYCARDIA
     Dosage: 1-2 UG/KG/MIN, ACHIEVING MAP }65 MMHG
  2. PROPRANOLOL [Suspect]
     Active Substance: PROPRANOLOL HYDROCHLORIDE
     Indication: THYROTOXIC CRISIS
     Dosage: 80 MG, UNK, THROUGH A NASOGASTRIC TUBE EVERY 4 HOURS
     Route: 048
  3. NOREPINEPHRINE. [Concomitant]
     Active Substance: NOREPINEPHRINE
     Dosage: 0.05 UG/KG/MIN ACHIEVING MAP }65 MMHG
  4. VANCOMYCIN [Concomitant]
     Active Substance: VANCOMYCIN
     Indication: PRODUCT USED FOR UNKNOWN INDICATION
     Dosage: DAY 2
  5. NOREPINEPHRINE. [Concomitant]
     Active Substance: NOREPINEPHRINE
     Indication: EJECTION FRACTION DECREASED
     Dosage: 0.1 UG/KG/MIN ACHIEVING MAP }65 MMHG
  6. HEPARIN [Concomitant]
     Active Substance: HEPARIN SODIUM
     Indication: ACUTE MYOCARDIAL INFARCTION
     Route: 042
  7. CEFEPIME [Concomitant]
     Active Substance: CEFEPIME HYDROCHLORIDE
     Indication: PRODUCT USED FOR UNKNOWN INDICATION
     Dosage: DAY 2
  8. MILRINONE [Concomitant]
     Active Substance: MILRINONE
     Indication: EJECTION FRACTION DECREASED
     Dosage: DAY 2 AND DAY 3
     Route: 042
  9. PROPRANOLOL [Suspect]
     Active Substance: PROPRANOLOL HYDROCHLORIDE
     Dosage: 40 MG, UNK, DAY 7 TO DAY 11
     Route: 048
  10. PROPRANOLOL [Suspect]
     Active Substance: PROPRANOLOL HYDROCHLORIDE
     Indication: THYROTOXIC CRISIS
     Dosage: 7 MG, UNK
     Route: 042
  11. PROPRANOLOL [Suspect]
     Active Substance: PROPRANOLOL HYDROCHLORIDE
     Dosage: 1 MG, MORE THAN 4/DAY, EVERY 4 HOURS
     Route: 042

REACTIONS (8)
  - Hypotension [Not Recovered/Not Resolved]
  - Product use in unapproved indication [Unknown]
  - Cardiogenic shock [Fatal]
  - Circulatory collapse [Fatal]
  - Off label use [Unknown]
  - Product use issue [Unknown]
  - Drug administered to patient of inappropriate age [Unknown]
  - Inappropriate schedule of drug administration [Unknown]
